FAERS Safety Report 26020601 (Version 1)
Quarter: 2025Q4

REPORT INFORMATION
  Report Type: Spontaneous
  Country: US (occurrence: US)
  Receive Date: 20251110
  Receipt Date: 20251110
  Transmission Date: 20260119
  Serious: Yes (Hospitalization, Other)
  Sender: VKT PHARMA PRIVATE LIMITED
  Company Number: US-VKT-000702

PATIENT
  Age: 32 Year
  Sex: Female

DRUGS (2)
  1. BOTULINUM TOXIN NOS [Suspect]
     Active Substance: BOTULINUM TOXIN NOS
     Indication: Migraine
     Route: 065
  2. SUMATRIPTAN [Suspect]
     Active Substance: SUMATRIPTAN
     Indication: Migraine
     Route: 065

REACTIONS (7)
  - Tinnitus [Recovered/Resolved]
  - Disorientation [Recovered/Resolved]
  - Mental status changes [Recovered/Resolved]
  - Deafness neurosensory [Recovered/Resolved]
  - Dizziness [Recovered/Resolved]
  - Condition aggravated [Recovered/Resolved]
  - Headache [Recovered/Resolved]
